FAERS Safety Report 24815872 (Version 1)
Quarter: 2025Q1

REPORT INFORMATION
  Report Type: Spontaneous
  Country: US (occurrence: US)
  Receive Date: 20250107
  Receipt Date: 20250107
  Transmission Date: 20250409
  Serious: No
  Sender: AMGEN
  Company Number: US-AMGEN-USASP2024257087

PATIENT
  Age: 47 Year
  Sex: Male

DRUGS (2)
  1. INFLIXIMAB [Suspect]
     Active Substance: INFLIXIMAB
     Indication: Crohn^s disease
     Route: 065
  2. UPADACITINIB [Concomitant]
     Active Substance: UPADACITINIB
     Indication: Rash
     Dosage: 15 MILLIGRAM, QD

REACTIONS (2)
  - Eczema [Unknown]
  - Rash pustular [Unknown]
